FAERS Safety Report 17581666 (Version 1)
Quarter: 2020Q1

REPORT INFORMATION
  Report Type: Spontaneous
  Country: US (occurrence: US)
  Receive Date: 20200323
  Receipt Date: 20200323
  Transmission Date: 20200409
  Serious: Yes (Other)
  Sender: FDA-Public Use
  Company Number: None

PATIENT
  Age: 64 Year
  Sex: Female
  Weight: 51.75 kg

DRUGS (1)
  1. INCRUSE ELLIPTA [Suspect]
     Active Substance: UMECLIDINIUM BROMIDE
     Indication: ASTHMA
     Dosage: ?          QUANTITY:1 INHALATION(S);?
     Route: 048
     Dates: start: 20191030, end: 20191112

REACTIONS (12)
  - Dyspnoea [None]
  - Dysphagia [None]
  - Myalgia [None]
  - Visual impairment [None]
  - Toothache [None]
  - Oropharyngeal pain [None]
  - Oral pain [None]
  - Tooth socket haemorrhage [None]
  - Confusional state [None]
  - Nausea [None]
  - Bradyphrenia [None]
  - Cough [None]

NARRATIVE: CASE EVENT DATE: 20191109
